FAERS Safety Report 5371767-3 (Version None)
Quarter: 2007Q2

REPORT INFORMATION
  Report Type: 
  Country: None (occurrence: None)
  Receive Date: 20070625
  Receipt Date: 20070612
  Transmission Date: 20071010
  Serious: Yes (Hospitalization)
  Sender: FDA-Public Use
  Company Number: 060002L07TUR

PATIENT
  Age: 29 Year
  Sex: Female

DRUGS (1)
  1. CLOMIPHENE CITRATE [Suspect]
     Indication: INFERTILITY FEMALE
     Dosage: 100 MG, 1 IN 1 CYCLE

REACTIONS (5)
  - BLOOD PRESSURE SYSTOLIC DECREASED [None]
  - CAESAREAN SECTION [None]
  - CEPHALO-PELVIC DISPROPORTION [None]
  - HEART RATE INCREASED [None]
  - HETEROTOPIC PREGNANCY [None]
